FAERS Safety Report 6305520 (Version 2)
Quarter: 2016Q2

REPORT INFORMATION
  Report Type: Spontaneous
  Country: BE (occurrence: BE)
  Receive Date: 20070507
  Receipt Date: 20160524
  Transmission Date: 20160815
  Serious: Yes (Other)
  Sender: FDA-Public Use
  Company Number: PHBS2007BE07416

PATIENT
  Age: 12 Year
  Sex: Male

DRUGS (1)
  1. PAMIDRONATE DISODIUM. [Suspect]
     Active Substance: PAMIDRONATE DISODIUM
     Indication: OSTEOGENESIS IMPERFECTA
     Dosage: 1 MG/KG (PER INFUSION), 3 CONSECUTIVE DAYS EVERY 3 MONTHS
     Route: 042

REACTIONS (3)
  - Product use issue [Unknown]
  - Bone disorder [Unknown]
  - Growth retardation [Unknown]
